FAERS Safety Report 10022379 (Version 4)
Quarter: 2014Q2

REPORT INFORMATION
  Report Type: Report from Study
  Country: US (occurrence: US)
  Receive Date: 20140319
  Receipt Date: 20140414
  Transmission Date: 20141212
  Serious: Yes (Life-Threatening, Hospitalization)
  Sender: FDA-Public Use
  Company Number: US-MERCK-1403USA008809

PATIENT
  Age: 59 Year
  Sex: Female
  Weight: 92.7 kg

DRUGS (3)
  1. VORINOSTAT [Suspect]
     Indication: ACUTE MYELOID LEUKAEMIA
     Dosage: 500 MG, TID, ON DAYS 1-3
     Route: 048
     Dates: start: 20140307, end: 20140309
  2. IDARUBICIN [Suspect]
     Indication: ACUTE MYELOID LEUKAEMIA
     Dosage: 12MG/M2/DAY ON DAYS 4-6
     Route: 042
     Dates: start: 20140310, end: 20140312
  3. CYTARABINE [Suspect]
     Indication: ACUTE MYELOID LEUKAEMIA
     Dosage: 1500MG/M2/DAY ON DAYS 4-7
     Route: 042
     Dates: start: 20140310, end: 20140313

REACTIONS (2)
  - Febrile neutropenia [Recovered/Resolved]
  - Colitis [Recovering/Resolving]
